FAERS Safety Report 13128173 (Version 2)
Quarter: 2017Q1

REPORT INFORMATION
  Report Type: Spontaneous
  Country: US (occurrence: US)
  Receive Date: 20170118
  Receipt Date: 20170119
  Transmission Date: 20170428
  Serious: Yes (Other)
  Sender: FDA-Public Use
  Company Number: US-PFIZER INC-2017016665

PATIENT
  Age: 73 Year
  Sex: Female

DRUGS (6)
  1. PREDNISONE. [Concomitant]
     Active Substance: PREDNISONE
     Indication: NON-HODGKIN^S LYMPHOMA
     Dosage: 60 MG/M2 DAYS 1 THROUGH 14
     Route: 048
  2. CYCLOPHOSPHAMIDE. [Concomitant]
     Active Substance: CYCLOPHOSPHAMIDE
     Indication: NON-HODGKIN^S LYMPHOMA
     Dosage: 650 MG/M2, CYCLIC (ON DAYS 1 AND 8)
  3. METHOTREXATE SODIUM. [Suspect]
     Active Substance: METHOTREXATE SODIUM
     Indication: NON-HODGKIN^S LYMPHOMA
     Dosage: 1500 MG/M2, CYCLIC (ON DAY 14)
     Route: 042
  4. VP 16-213 [Concomitant]
     Indication: NON-HODGKIN^S LYMPHOMA
     Dosage: 120 MG/M2, CYCLIC (ON DAYS 1 AND 8)
     Route: 042
  5. DOXORUBICIN [Concomitant]
     Active Substance: DOXORUBICIN
     Indication: NON-HODGKIN^S LYMPHOMA
     Dosage: 25 MG/M2, CYCLIC (ON DAYS 1 AND 8)
  6. FOLINIC ACID [Concomitant]
     Active Substance: LEUCOVORIN
     Dosage: 50 MG/M2 EVER 6 HOURS, UNTIL METHOTREXATE LEVELS AT 5
     Route: 042

REACTIONS (1)
  - Dermatitis exfoliative [Unknown]
